FAERS Safety Report 17562712 (Version 1)
Quarter: 2020Q1

REPORT INFORMATION
  Report Type: Other
  Country: CA (occurrence: CA)
  Receive Date: 20200319
  Receipt Date: 20200319
  Transmission Date: 20200409
  Serious: Yes (Other)
  Sender: FDA-Public Use
  Company Number: CA-BECTON DICKINSON-2020BDN00094

PATIENT
  Age: 42 Year
  Sex: Female

DRUGS (20)
  1. OXYCODONE TEREPHTHALATE [Suspect]
     Active Substance: OXYCODONE TEREPHTHALATE
  2. ASCORBIC ACID. [Concomitant]
     Active Substance: ASCORBIC ACID
  3. CIMZIA [Suspect]
     Active Substance: CERTOLIZUMAB PEGOL
     Indication: RHEUMATOID ARTHRITIS
     Dosage: 400 MG
     Route: 058
  4. SIMPONI [Suspect]
     Active Substance: GOLIMUMAB
     Route: 058
  5. HYDROXYCHLOROQUINE [Concomitant]
     Active Substance: HYDROXYCHLOROQUINE
  6. TYLENOL [Concomitant]
     Active Substance: ACETAMINOPHEN
  7. METHOTREXATE. [Suspect]
     Active Substance: METHOTREXATE
  8. PREDNISONE. [Concomitant]
     Active Substance: PREDNISONE
  9. LEFLUNOMIDE. [Suspect]
     Active Substance: LEFLUNOMIDE
  10. PANTOPRAZOLE [Concomitant]
     Active Substance: PANTOPRAZOLE
  11. CHLORHEXIDINE [Suspect]
     Active Substance: CHLORHEXIDINE
  12. ERGOCALCIFEROL. [Concomitant]
     Active Substance: ERGOCALCIFEROL
  13. IBUPROFEN. [Concomitant]
     Active Substance: IBUPROFEN
  14. ACETAMINOPHEN. [Suspect]
     Active Substance: ACETAMINOPHEN
  15. ACTEMRA [Suspect]
     Active Substance: TOCILIZUMAB
  16. ORENCIA [Suspect]
     Active Substance: ABATACEPT
  17. REACTINE [Concomitant]
  18. ENBREL [Suspect]
     Active Substance: ETANERCEPT
     Indication: RHEUMATOID ARTHRITIS
  19. OXYCODONE [Suspect]
     Active Substance: OXYCODONE
  20. VENTOLIN [Concomitant]
     Active Substance: ALBUTEROL SULFATE

REACTIONS (20)
  - Headache [Unknown]
  - Abdominal pain upper [Unknown]
  - Respiratory disorder [Unknown]
  - Vomiting [Unknown]
  - Insomnia [Unknown]
  - Lower respiratory tract infection [Unknown]
  - Peripheral swelling [Unknown]
  - Muscle spasticity [Unknown]
  - Back pain [Unknown]
  - Diarrhoea [Unknown]
  - Asthenia [Unknown]
  - Ear pain [Unknown]
  - Joint swelling [Unknown]
  - Night sweats [Unknown]
  - Body temperature increased [Unknown]
  - Sinusitis [Unknown]
  - Pain [Unknown]
  - Pruritus [Unknown]
  - Rash [Unknown]
  - Urticaria [Unknown]
